FAERS Safety Report 25385085 (Version 2)
Quarter: 2025Q3

REPORT INFORMATION
  Report Type: Spontaneous
  Country: EU (occurrence: EU)
  Receive Date: 20250602
  Receipt Date: 20250721
  Transmission Date: 20251021
  Serious: Yes (Other)
  Sender: SANOFI AVENTIS
  Company Number: EU-SA-2025SA152373

PATIENT
  Age: 34 Year
  Sex: Male

DRUGS (1)
  1. DUPIXENT [Suspect]
     Active Substance: DUPILUMAB
     Indication: Dermatitis atopic
     Route: 065
     Dates: start: 20210616, end: 2025

REACTIONS (1)
  - Malignant genitourinary tract neoplasm [Unknown]

NARRATIVE: CASE EVENT DATE: 20250101
